FAERS Safety Report 5527616-3 (Version None)
Quarter: 2007Q4

REPORT INFORMATION
  Report Type: 
  Country: None (occurrence: None)
  Receive Date: 20071121
  Receipt Date: 20071114
  Transmission Date: 20080405
  Serious: Yes (Death)
  Sender: FDA-Public Use
  Company Number: 163-21880-07110912

PATIENT
  Age: 62 Year
  Sex: Female

DRUGS (2)
  1. REVLIMID [Suspect]
     Indication: MULTIPLE MYELOMA
     Dosage: 15 MG, DAILY, ORAL; 5 MG, 1 IN 1 D, ORAL
     Route: 048
     Dates: start: 20070108, end: 20070401
  2. REVLIMID [Suspect]
     Indication: MULTIPLE MYELOMA
     Dosage: 15 MG, DAILY, ORAL; 5 MG, 1 IN 1 D, ORAL
     Route: 048
     Dates: start: 20070531, end: 20070501

REACTIONS (1)
  - DEATH [None]
